FAERS Safety Report 6079617-7 (Version None)
Quarter: 2009Q1

REPORT INFORMATION
  Report Type: 
  Country: None (occurrence: None)
  Receive Date: 20090217
  Receipt Date: 20090204
  Transmission Date: 20090719
  Serious: Yes (Hospitalization, Other)
  Sender: FDA-Public Use
  Company Number: CN-JNJFOC-20090201180

PATIENT
  Age: 11 Year
  Sex: Male

DRUGS (6)
  1. PARACETAMOL [Suspect]
     Dosage: INCREASING DOSES OVER A 4 HOUR PERIOD, UNTIL AN ACCUMULATIVE DOSE OF 500 MG (DPT)
  2. PARACETAMOL [Suspect]
  3. PARACETAMOL [Suspect]
     Indication: PHARYNGITIS
  4. AMPICILLIN [Concomitant]
     Indication: PHARYNGITIS
  5. CLOXACILLIN [Concomitant]
     Indication: PHARYNGITIS
  6. AMOXICILLIN [Concomitant]
     Indication: PHARYNGITIS

REACTIONS (2)
  - ANAPHYLACTIC REACTION [None]
  - BLISTER [None]
